FAERS Safety Report 11567192 (Version 1)
Quarter: 2015Q3

REPORT INFORMATION
  Report Type: Spontaneous
  Country: US (occurrence: US)
  Receive Date: 20150929
  Receipt Date: 20150929
  Transmission Date: 20151125
  Serious: Yes (Other)
  Sender: FDA-Public Use
  Company Number: US-ASTRAZENECA-2015SE91931

PATIENT
  Sex: Female

DRUGS (2)
  1. LEVEMIR [Concomitant]
     Active Substance: INSULIN DETEMIR
     Indication: DIABETES MELLITUS
     Dosage: PRN
     Route: 058
  2. BYDUREON [Suspect]
     Active Substance: EXENATIDE
     Indication: DIABETES MELLITUS
     Route: 058

REACTIONS (11)
  - Bone disorder [Unknown]
  - Weight increased [Unknown]
  - Angiopathy [Unknown]
  - Arthralgia [Unknown]
  - Blood glucose fluctuation [Unknown]
  - Fall [Unknown]
  - Anxiety [Unknown]
  - Dizziness [Unknown]
  - Synovial cyst [Unknown]
  - Nausea [Unknown]
  - Weight decreased [Unknown]
